FAERS Safety Report 9886947 (Version 1)
Quarter: 2014Q1

REPORT INFORMATION
  Report Type: Spontaneous
  Country: US (occurrence: US)
  Receive Date: 20140211
  Receipt Date: 20140211
  Transmission Date: 20141002
  Serious: No
  Sender: FDA-Public Use
  Company Number: US-009507513-1402USA002405

PATIENT
  Sex: Male

DRUGS (1)
  1. LIPTRUZET [Suspect]
     Dosage: 10/20MG ONCE DAILY
     Route: 048
     Dates: start: 201309, end: 2014

REACTIONS (3)
  - Pain in extremity [Unknown]
  - Drug dose omission [Unknown]
  - No adverse event [Unknown]
